FAERS Safety Report 7425520-7 (Version None)
Quarter: 2011Q2

REPORT INFORMATION
  Report Type: 
  Country: None (occurrence: None)
  Receive Date: 20110418
  Receipt Date: 20110418
  Transmission Date: 20111010
  Serious: Yes (Life-Threatening, Other)
  Sender: FDA-Public Use
  Company Number: None

PATIENT
  Sex: Female
  Weight: 136.0791 kg

DRUGS (2)
  1. MULTAQ [Suspect]
     Indication: ATRIAL FIBRILLATION
     Dosage: 400 MG TWICE PER DAY PO
     Route: 048
     Dates: start: 20101114, end: 20110415
  2. DILANTIN [Suspect]
     Indication: CONVULSION
     Dosage: 600 MG ONCE PER DAY PO
     Route: 048
     Dates: start: 19941215, end: 20110415

REACTIONS (1)
  - TOXICITY TO VARIOUS AGENTS [None]
